FAERS Safety Report 19196361 (Version 1)
Quarter: 2021Q2

REPORT INFORMATION
  Report Type: Spontaneous
  Country: TR (occurrence: TR)
  Receive Date: 20210429
  Receipt Date: 20210429
  Transmission Date: 20210717
  Serious: Yes (Hospitalization, Other)
  Sender: FDA-Public Use
  Company Number: NVSC2021TR095910

PATIENT
  Age: 79 Year
  Sex: Female

DRUGS (3)
  1. LETROZOLE. [Concomitant]
     Active Substance: LETROZOLE
     Indication: INVASIVE DUCTAL BREAST CARCINOMA
     Dosage: 2.5 MG, QD
     Route: 048
  2. RIBOCICLIB. [Suspect]
     Active Substance: RIBOCICLIB
     Indication: INVASIVE DUCTAL BREAST CARCINOMA
     Dosage: 600 MG, QD 1?21 OF A 28?DAY CYCLE
     Route: 048
  3. RIBOCICLIB. [Suspect]
     Active Substance: RIBOCICLIB
     Dosage: 400 MG, QD
     Route: 065

REACTIONS (1)
  - Acute kidney injury [Recovered/Resolved]
